FAERS Safety Report 6154134-4 (Version None)
Quarter: 2009Q2

REPORT INFORMATION
  Report Type: 
  Country: None (occurrence: None)
  Receive Date: 20090414
  Receipt Date: 20090408
  Transmission Date: 20091009
  Serious: Yes (Other)
  Sender: FDA-Public Use
  Company Number: CA-BAYER-200917897NA

PATIENT
  Age: 40 Year
  Sex: Female
  Weight: 113 kg

DRUGS (4)
  1. MIRENA [Suspect]
     Indication: DRUG USE FOR UNKNOWN INDICATION
     Dosage: CONTINUOUS
     Route: 015
  2. COUMADIN [Concomitant]
  3. METFORMIN HCL [Concomitant]
  4. NEXIUM [Concomitant]

REACTIONS (4)
  - ABDOMINAL PAIN [None]
  - GENITAL SWELLING [None]
  - MUCOSAL INFLAMMATION [None]
  - SOMNOLENCE [None]
